FAERS Safety Report 8350719-5 (Version None)
Quarter: 2012Q2

REPORT INFORMATION
  Report Type: 
  Country: None (occurrence: None)
  Receive Date: 20120510
  Receipt Date: 20120507
  Transmission Date: 20120825
  Serious: Yes (Death, Hospitalization)
  Sender: FDA-Public Use
  Company Number: US-GLAXOSMITHKLINE-A0935709A

PATIENT
  Sex: Female

DRUGS (1)
  1. AVANDIA [Suspect]
     Indication: DIABETES MELLITUS
     Route: 048
     Dates: end: 20040117

REACTIONS (5)
  - CARDIAC FAILURE CONGESTIVE [None]
  - TRANSIENT ISCHAEMIC ATTACK [None]
  - FRACTURE [None]
  - CARDIAC DEATH [None]
  - MYOCARDIAL INFARCTION [None]
